FAERS Safety Report 10039793 (Version 2)
Quarter: 2014Q1

REPORT INFORMATION
  Report Type: Spontaneous
  Country: GB (occurrence: GB)
  Receive Date: 20140326
  Receipt Date: 20140326
  Transmission Date: 20141002
  Serious: Yes (Death, Hospitalization)
  Sender: FDA-Public Use
  Company Number: GB-JNJFOC-20140101874

PATIENT
  Age: 91 Year
  Sex: Male
  Weight: 84 kg

DRUGS (8)
  1. XARELTO [Suspect]
     Indication: CEREBROVASCULAR ACCIDENT PROPHYLAXIS
     Route: 048
     Dates: start: 20130901
  2. XARELTO [Suspect]
     Indication: ATRIAL FIBRILLATION
     Route: 048
     Dates: start: 20130901
  3. ASPIRIN [Concomitant]
     Route: 065
  4. FUROSEMIDE [Concomitant]
     Route: 065
  5. ALISKIREN [Concomitant]
     Route: 065
  6. DOXAZOSIN [Concomitant]
     Route: 065
  7. DOXYCYCLINE [Concomitant]
     Route: 065
  8. PARACETAMOL [Concomitant]
     Route: 065

REACTIONS (12)
  - Upper gastrointestinal haemorrhage [Fatal]
  - Haematemesis [Not Recovered/Not Resolved]
  - Shock [Not Recovered/Not Resolved]
  - Anaemia [Unknown]
  - Communication disorder [Unknown]
  - Confusional state [Unknown]
  - Cough [Unknown]
  - Dysstasia [Unknown]
  - Somnolence [Unknown]
  - Fatigue [Unknown]
  - Respiratory disorder [Unknown]
  - Asthenia [Unknown]
